FAERS Safety Report 9881655 (Version 3)
Quarter: 2014Q1

REPORT INFORMATION
  Report Type: Spontaneous
  Country: US (occurrence: None)
  Receive Date: 20140205
  Receipt Date: 20140228
  Transmission Date: 20141002
  Serious: Yes (Other)
  Sender: FDA-Public Use
  Company Number: ADR-2014-00168

PATIENT
  Sex: Male

DRUGS (7)
  1. BACLOFEN INTRATHECAL [Suspect]
     Indication: CEREBRAL PALSY
  2. MORPHINE [Suspect]
     Dosage: INTRATHECAL.
  3. NORCO [Suspect]
  4. MIRTAZAPINE [Suspect]
  5. CYMBALTA [Suspect]
  6. SEROQUEL [Suspect]
  7. BUPIVACAINE [Suspect]

REACTIONS (17)
  - Confusional state [None]
  - Hypothermia [None]
  - Haemorrhage [None]
  - Euphoric mood [None]
  - Blood pressure increased [None]
  - Memory impairment [None]
  - Paranoia [None]
  - Red blood cell count decreased [None]
  - Respiratory depression [None]
  - Somnolence [None]
  - Intentional self-injury [None]
  - Suicidal behaviour [None]
  - Tracheal haemorrhage [None]
  - Anxiety [None]
  - Delirium [None]
  - Depression [None]
  - Hypoxia [None]
